FAERS Safety Report 24298081 (Version 1)
Quarter: 2024Q3

REPORT INFORMATION
  Report Type: Spontaneous
  Country: US (occurrence: None)
  Receive Date: 20240906
  Receipt Date: 20240906
  Transmission Date: 20241016
  Serious: No
  Sender: Public
  Company Number: None

PATIENT
  Sex: Female

DRUGS (1)
  1. LENALIDOMIDE [Suspect]
     Active Substance: LENALIDOMIDE
     Indication: Plasma cell myeloma
     Dosage: OTHER FREQUENCY : 1 TIME A DAY FOR 14 DAYS ON THEN 7 DAYS OFF;?
     Route: 048
     Dates: start: 202310

REACTIONS (3)
  - Fatigue [None]
  - Asthenia [None]
  - Therapy interrupted [None]
